FAERS Safety Report 23141183 (Version 1)
Quarter: 2023Q4

REPORT INFORMATION
  Report Type: Spontaneous
  Country: PL (occurrence: PL)
  Receive Date: 20231103
  Receipt Date: 20231103
  Transmission Date: 20240110
  Serious: Yes (Life-Threatening, Other)
  Sender: FDA-Public Use
  Company Number: PL-URPL-DML-MLP.4401.1.444.2023

PATIENT
  Age: 18 Year
  Sex: Male
  Weight: 45 kg

DRUGS (3)
  1. LAMOTRIGINE [Suspect]
     Active Substance: LAMOTRIGINE
     Indication: Toxicity to various agents
     Dosage: UNK
     Route: 048
     Dates: start: 20230209, end: 20230209
  2. VENLAFAXINE [Suspect]
     Active Substance: VENLAFAXINE HYDROCHLORIDE
     Indication: Toxicity to various agents
     Dosage: UNK
     Route: 048
     Dates: start: 20230209, end: 20230209
  3. OLANZAPINE [Suspect]
     Active Substance: OLANZAPINE
     Indication: Toxicity to various agents
     Dosage: UNK
     Route: 048
     Dates: start: 20230209, end: 20230209

REACTIONS (3)
  - Loss of consciousness [Recovering/Resolving]
  - Suicide attempt [Recovering/Resolving]
  - Toxicity to various agents [Recovering/Resolving]

NARRATIVE: CASE EVENT DATE: 20230209
